FAERS Safety Report 9025064 (Version 1)
Quarter: 2013Q1

REPORT INFORMATION
  Report Type: Spontaneous
  Country: CO (occurrence: CO)
  Receive Date: 20130121
  Receipt Date: 20130121
  Transmission Date: 20140127
  Serious: Yes (Hospitalization)
  Sender: FDA-Public Use
  Company Number: CO-GENZYME-CERZ-1002784

PATIENT
  Age: 4 None
  Sex: Male
  Weight: 14 kg

DRUGS (1)
  1. CEREZYME [Suspect]
     Indication: GAUCHER^S DISEASE
     Dosage: 4 VIALS, MONTHLY
     Route: 042
     Dates: start: 20110513

REACTIONS (4)
  - Convulsion [Unknown]
  - Pyrexia [Unknown]
  - Platelet count decreased [Unknown]
  - Decreased appetite [Unknown]
